FAERS Safety Report 15795231 (Version 1)
Quarter: 2019Q1

REPORT INFORMATION
  Report Type: Report from Study
  Country: US (occurrence: US)
  Receive Date: 20190107
  Receipt Date: 20190107
  Transmission Date: 20190417
  Serious: Yes (Hospitalization)
  Sender: FDA-Public Use
  Company Number: US-NOVOPROD-640425

PATIENT
  Age: 58 Year
  Sex: Female

DRUGS (2)
  1. XULTOPHY 100/3.6 [Suspect]
     Active Substance: INSULIN DEGLUDEC\LIRAGLUTIDE
     Indication: TYPE 2 DIABETES MELLITUS
     Dosage: UNK
     Route: 058
     Dates: start: 20181206
  2. PRAVASTATIN. [Suspect]
     Active Substance: PRAVASTATIN
     Indication: PRODUCT USED FOR UNKNOWN INDICATION
     Dates: start: 20181114

REACTIONS (10)
  - Skin haemorrhage [Recovering/Resolving]
  - Blood glucose increased [Recovering/Resolving]
  - Migraine [Recovered/Resolved]
  - Swelling face [Unknown]
  - Diarrhoea [Recovering/Resolving]
  - Stress [Unknown]
  - Pyrexia [Recovered/Resolved]
  - Rash pruritic [Recovering/Resolving]
  - Dyspnoea [Recovering/Resolving]
  - Eye swelling [Recovering/Resolving]

NARRATIVE: CASE EVENT DATE: 201812
